FAERS Safety Report 7809847-2 (Version None)
Quarter: 2011Q4

REPORT INFORMATION
  Report Type: 
  Country: None (occurrence: None)
  Receive Date: 20111012
  Receipt Date: 20111006
  Transmission Date: 20120403
  Serious: Yes (Other)
  Sender: FDA-Public Use
  Company Number: AU-ABBOTT-11P-008-0861601-00

PATIENT
  Sex: Male
  Weight: 88 kg

DRUGS (1)
  1. HUMIRA [Suspect]
     Indication: PRODUCT USED FOR UNKNOWN INDICATION
     Route: 050
     Dates: end: 20110108

REACTIONS (7)
  - MYALGIA [None]
  - SUICIDAL IDEATION [None]
  - ANXIETY [None]
  - AGORAPHOBIA [None]
  - MOTION SICKNESS [None]
  - MIGRAINE [None]
  - PAIN [None]
